FAERS Safety Report 20640542 (Version 2)
Quarter: 2025Q2

REPORT INFORMATION
  Report Type: Spontaneous
  Country: US (occurrence: US)
  Receive Date: 20220327
  Receipt Date: 20250415
  Transmission Date: 20250717
  Serious: No
  Sender: SANOFI AVENTIS
  Company Number: US-SA-SAC20220322001810

PATIENT
  Age: 75 Year
  Sex: Female

DRUGS (25)
  1. DUPIXENT [Suspect]
     Active Substance: DUPILUMAB
     Indication: Asthma
     Dosage: 300 MG, QOW
     Route: 058
     Dates: start: 20250129
  2. DUPIXENT [Suspect]
     Active Substance: DUPILUMAB
     Indication: Multiple sclerosis
  3. FLOVENT [Concomitant]
     Active Substance: FLUTICASONE PROPIONATE
  4. FLUTICASONE [Concomitant]
     Active Substance: FLUTICASONE
  5. GLATIRAMER ACETATE [Concomitant]
     Active Substance: GLATIRAMER ACETATE
  6. MELATONIN [Concomitant]
     Active Substance: MELATONIN
  7. MONTELUKAST SODIUM [Concomitant]
     Active Substance: MONTELUKAST SODIUM
     Indication: Asthma
  8. SYNTHROID [Concomitant]
     Active Substance: LEVOTHYROXINE SODIUM
  9. CYANOCOBALAMIN [Concomitant]
     Active Substance: CYANOCOBALAMIN
  10. VITAMIN D3 [Concomitant]
     Active Substance: CHOLECALCIFEROL
  11. VYTORIN [Concomitant]
     Active Substance: EZETIMIBE\SIMVASTATIN
  12. ZYFLO [Concomitant]
     Active Substance: ZILEUTON
     Indication: Asthma
  13. GLATIRAMER [Concomitant]
     Active Substance: GLATIRAMER
  14. FAMOTIDINE [Concomitant]
     Active Substance: FAMOTIDINE
  15. CLARITHROMYCIN [Concomitant]
     Active Substance: CLARITHROMYCIN
  16. FASENRA [Concomitant]
     Active Substance: BENRALIZUMAB
  17. ALLEGRA ALLERGY [Concomitant]
     Active Substance: FEXOFENADINE HYDROCHLORIDE
  18. IRON [Concomitant]
     Active Substance: IRON
  19. BACTRIM [Concomitant]
     Active Substance: SULFAMETHOXAZOLE\TRIMETHOPRIM
  20. PROBIOTICS NOS [Concomitant]
     Active Substance: PROBIOTICS NOS
  21. MOMETASONE [Concomitant]
     Active Substance: MOMETASONE
  22. ASPIRIN [Concomitant]
     Active Substance: ASPIRIN
  23. MINERALS\VITAMINS [Concomitant]
     Active Substance: MINERALS\VITAMINS
  24. IBUPROFEN [Concomitant]
     Active Substance: IBUPROFEN
  25. PREDNISONE [Concomitant]
     Active Substance: PREDNISONE

REACTIONS (8)
  - Depression [Not Recovered/Not Resolved]
  - Fatigue [Not Recovered/Not Resolved]
  - Depressed mood [Not Recovered/Not Resolved]
  - Decreased interest [Unknown]
  - Insomnia [Not Recovered/Not Resolved]
  - Chills [Not Recovered/Not Resolved]
  - Impaired quality of life [Not Recovered/Not Resolved]
  - Product use in unapproved indication [Unknown]

NARRATIVE: CASE EVENT DATE: 20250101
